FAERS Safety Report 12630352 (Version 1)
Quarter: 2016Q3

REPORT INFORMATION
  Report Type: Spontaneous
  Country: CH (occurrence: FI)
  Receive Date: 20160808
  Receipt Date: 20160808
  Transmission Date: 20161109
  Serious: Yes (Other)
  Sender: FDA-Public Use
  Company Number: CH-LPDUSPRD-20160676

PATIENT
  Age: 33 Year
  Sex: Female

DRUGS (3)
  1. FERINJECT [Suspect]
     Active Substance: FERRIC CARBOXYMALTOSE
     Dosage: 1000MG
     Route: 041
     Dates: start: 20160609, end: 20160609
  2. ENTYVIO [Concomitant]
     Active Substance: VEDOLIZUMAB
     Dates: start: 20160609, end: 20160609
  3. PARACETEMOL [Concomitant]
     Dosage: 500 MG
     Dates: start: 20160609, end: 20160609

REACTIONS (2)
  - Dyspnoea [Unknown]
  - Skin reaction [Unknown]

NARRATIVE: CASE EVENT DATE: 20160609
